FAERS Safety Report 11910708 (Version 1)
Quarter: 2016Q1

REPORT INFORMATION
  Report Type: Spontaneous
  Country: US (occurrence: None)
  Receive Date: 20160111
  Receipt Date: 20160111
  Transmission Date: 20160526
  Serious: Yes (Other)
  Sender: FDA-Public Use
  Company Number: None

PATIENT
  Age: 53 Year
  Sex: Male
  Weight: 83.92 kg

DRUGS (4)
  1. AMLODIPINE BESYLATE. [Concomitant]
     Active Substance: AMLODIPINE BESYLATE
  2. TIZANIDINE. [Concomitant]
     Active Substance: TIZANIDINE
  3. HYDROCODONE [Concomitant]
     Active Substance: HYDROCODONE
  4. MS CONTIN [Suspect]
     Active Substance: MORPHINE SULFATE
     Indication: BACK PAIN
     Route: 048

REACTIONS (5)
  - Product substitution issue [None]
  - Vomiting [None]
  - Dysgeusia [None]
  - Product tampering [None]
  - Parosmia [None]

NARRATIVE: CASE EVENT DATE: 20160110
